FAERS Safety Report 8828730 (Version 1)
Quarter: 2012Q4

REPORT INFORMATION
  Report Type: 
  Country: IT (occurrence: IT)
  Receive Date: 20121008
  Receipt Date: 20121008
  Transmission Date: 20130627
  Serious: Yes (Death, Other)
  Sender: FDA-Public Use
  Company Number: IT-CELGENEUS-083-21880-12100246

PATIENT

DRUGS (5)
  1. REVLIMID [Suspect]
     Indication: AMYLOIDOSIS NOS
     Dosage: 15 Milligram
     Route: 048
  2. REVLIMID [Suspect]
     Dosage: 10 Milligram
     Route: 048
  3. CYCLOPHOSPHAMIDE [Suspect]
     Indication: AMYLOIDOSIS NOS
     Route: 065
  4. DEXAMETHASONE [Suspect]
     Indication: AMYLOIDOSIS NOS
     Dosage: 40, 20 mg
     Route: 065
  5. ASPIRINE [Concomitant]
     Indication: THROMBOSIS PROPHYLAXIS
     Dosage: 100 Milligram
     Route: 065

REACTIONS (10)
  - Hepatic failure [Fatal]
  - Fluid retention [Unknown]
  - Sudden death [Fatal]
  - Cardiac failure [Fatal]
  - Renal failure chronic [Unknown]
  - Pancytopenia [Unknown]
  - Glomerular filtration rate decreased [Unknown]
  - Neutropenia [Unknown]
  - Thrombocytopenia [Unknown]
  - Rash [Unknown]
